FAERS Safety Report 9458195 (Version 1)
Quarter: 2013Q3

REPORT INFORMATION
  Report Type: Spontaneous
  Country: US (occurrence: US)
  Receive Date: 20130814
  Receipt Date: 20130814
  Transmission Date: 20140515
  Serious: No
  Sender: FDA-Public Use
  Company Number: US-GLAXOSMITHKLINE-A1025567A

PATIENT
  Age: 17 Year
  Sex: Female

DRUGS (2)
  1. VELTIN [Suspect]
     Indication: ACNE
     Dosage: 1APP PER DAY
     Route: 061
     Dates: start: 20130531
  2. NO CONCURRENT MEDICATION [Concomitant]

REACTIONS (2)
  - Application site irritation [Recovering/Resolving]
  - Erythema [Unknown]
